FAERS Safety Report 6577613-4 (Version None)
Quarter: 2010Q1

REPORT INFORMATION
  Report Type: 
  Country: None (occurrence: None)
  Receive Date: 20100211
  Receipt Date: 20100201
  Transmission Date: 20100710
  Serious: Yes (Other)
  Sender: FDA-Public Use
  Company Number: PHHY2010BR05881

PATIENT
  Age: 45 Year
  Sex: Male
  Weight: 91 kg

DRUGS (2)
  1. TEGRETOL-XR [Suspect]
     Indication: CONVULSION
     Dosage: UNK
     Route: 048
     Dates: start: 20040101
  2. TEGRETOL-XR [Suspect]
     Dosage: 400MG, 02 TABLETS IN MORNING AND 2.5 TABLETS IN AFTERNOON
     Route: 048
     Dates: start: 20070101

REACTIONS (4)
  - BONE FISSURE [None]
  - PAIN IN EXTREMITY [None]
  - SOMNOLENCE [None]
  - TENDONITIS [None]
